FAERS Safety Report 9651774 (Version 1)
Quarter: 2013Q4

REPORT INFORMATION
  Report Type: Spontaneous
  Country: US (occurrence: US)
  Receive Date: 20131029
  Receipt Date: 20131029
  Transmission Date: 20140711
  Serious: No
  Sender: FDA-Public Use
  Company Number: US-ENDO PHARMACEUTICALS INC.-HCDA20120097

PATIENT
  Sex: Female
  Weight: 121.22 kg

DRUGS (4)
  1. HYDROCODONE/ACETAMINOPHEN SOLUTION 7.5MG/500MG PER 15ML [Suspect]
     Indication: PAIN
     Dosage: 30MG/2000MG
     Route: 048
  2. HYDROCHLOROTHIAZIDE CAPSULES [Concomitant]
     Indication: OEDEMA
     Dosage: UNKNOWN
     Route: 048
  3. AMITRIPTYLINE HCL 50MG [Concomitant]
     Indication: PRODUCT USED FOR UNKNOWN INDICATION
     Dosage: 50 MG
     Route: 048
  4. ZOLPIDEM TARTRATE TABLETS [Concomitant]
     Indication: PRODUCT USED FOR UNKNOWN INDICATION
     Dosage: UNKNOWN
     Route: 048

REACTIONS (1)
  - Weight loss poor [Not Recovered/Not Resolved]
